FAERS Safety Report 22609930 (Version 3)
Quarter: 2024Q3

REPORT INFORMATION
  Report Type: Report from Study
  Country: FR (occurrence: FR)
  Receive Date: 20230616
  Receipt Date: 20240828
  Transmission Date: 20241017
  Serious: Yes (Life-Threatening, Hospitalization)
  Sender: SERVIER
  Company Number: FR-SERVIER-S21009797

PATIENT

DRUGS (10)
  1. PEGASPARGASE [Suspect]
     Active Substance: PEGASPARGASE
     Indication: Acute lymphocytic leukaemia
     Dosage: 1650 IU, D12
     Route: 042
     Dates: start: 20190305, end: 20190305
  2. PREDNISOLONE [Suspect]
     Active Substance: PREDNISOLONE
     Indication: Acute lymphocytic leukaemia
     Dosage: 20 MG, D1 TO D4
     Route: 042
     Dates: start: 20190222, end: 20190225
  3. DEXAMETHASONE [Suspect]
     Active Substance: DEXAMETHASONE
     Indication: Acute lymphocytic leukaemia
     Dosage: 4 MG, D8-28
     Route: 048
     Dates: start: 20190301, end: 20190321
  4. METHYLPREDNISOLONE [Suspect]
     Active Substance: METHYLPREDNISOLONE
     Indication: Acute lymphocytic leukaemia
     Dosage: 20 MG, D1 TO D12
     Route: 042
     Dates: start: 20190221, end: 20190306
  5. VINCRISTINE [Suspect]
     Active Substance: VINCRISTINE
     Indication: Acute lymphocytic leukaemia
     Dosage: 1 MG, D8, D15, D22, D29
     Route: 042
     Dates: start: 20190301, end: 20190322
  6. METHOTREXATE [Suspect]
     Active Substance: METHOTREXATE
     Indication: Acute lymphocytic leukaemia
     Dosage: 12 MG, D1, D13 AND D24
     Route: 037
     Dates: start: 20190222, end: 20190321
  7. CEFTAZIDIME [Concomitant]
     Active Substance: CEFTAZIDIME
     Indication: Orchitis
     Dosage: 2400 MG
     Route: 042
     Dates: start: 20190226, end: 20190306
  8. RASBURICASE [Concomitant]
     Active Substance: RASBURICASE
     Indication: Tumour lysis syndrome
     Dosage: 3 MG
     Route: 048
     Dates: start: 20190221, end: 20190306
  9. FUROSEMIDE [Concomitant]
     Active Substance: FUROSEMIDE
     Indication: Urinary retention
     Dosage: 28 MG
     Route: 042
     Dates: start: 20190227, end: 20190306
  10. VANCOMYCIN [Concomitant]
     Active Substance: VANCOMYCIN
     Indication: Orchitis
     Dosage: 950 MG
     Route: 042
     Dates: start: 20190301, end: 20190304

REACTIONS (3)
  - Staphylococcal sepsis [Recovered/Resolved]
  - Pseudomonal sepsis [Recovered/Resolved]
  - Hyperglycaemia [Recovered/Resolved]

NARRATIVE: CASE EVENT DATE: 20190306
